FAERS Safety Report 14432947 (Version 1)
Quarter: 2018Q1

REPORT INFORMATION
  Report Type: Report from Study
  Country: US (occurrence: US)
  Receive Date: 20180124
  Receipt Date: 20180124
  Transmission Date: 20180509
  Serious: Yes (Other)
  Sender: FDA-Public Use
  Company Number: US-BAYER-2017-219842

PATIENT
  Age: 67 Year
  Sex: Male
  Weight: 73.47 kg

DRUGS (2)
  1. STIVARGA [Suspect]
     Active Substance: REGORAFENIB
     Indication: RECTAL CANCER
     Dosage: 160 MG DAILY FOR 21 DAYS
     Route: 048
     Dates: start: 20171012, end: 20171027
  2. STIVARGA [Suspect]
     Active Substance: REGORAFENIB
     Indication: RECTAL CANCER
     Dosage: 120 MG DAILY DOSE FOR 21 DAYS ON AND 7 DAYS OFF
     Route: 048
     Dates: start: 2017

REACTIONS (4)
  - Blister [Recovering/Resolving]
  - Metastases to lung [Unknown]
  - Oropharyngeal blistering [Unknown]
  - Palmar-plantar erythrodysaesthesia syndrome [Recovering/Resolving]
